FAERS Safety Report 8578527-0 (Version None)
Quarter: 2012Q2

REPORT INFORMATION
  Report Type: 
  Country: None (occurrence: None)
  Receive Date: 20120423
  Receipt Date: 20100420
  Transmission Date: 20120825
  Serious: Yes (Other)
  Sender: FDA-Public Use
  Company Number: PHEH2009US18582

PATIENT
  Age: 74 Year
  Sex: Female
  Weight: 112.5 kg

DRUGS (5)
  1. ARANESP [Suspect]
     Indication: REFRACTORY ANAEMIA WITH AN EXCESS OF BLASTS
  2. EXJADE [Suspect]
     Indication: REFRACTORY ANAEMIA WITH AN EXCESS OF BLASTS
     Dosage: 2.2 GM A DAY, 2250 MG, QD, ORAL, 250 MG, QD, ORAL, 225 MG, UNK, ORAL
     Route: 048
     Dates: start: 20100204, end: 20100224
  3. EXJADE [Suspect]
     Indication: REFRACTORY ANAEMIA WITH AN EXCESS OF BLASTS
     Dosage: 2.2 GM A DAY, 2250 MG, QD, ORAL, 250 MG, QD, ORAL, 225 MG, UNK, ORAL
     Route: 048
     Dates: start: 20091214, end: 20091222
  4. EXJADE [Suspect]
     Indication: REFRACTORY ANAEMIA WITH AN EXCESS OF BLASTS
     Dosage: 2.2 GM A DAY, 2250 MG, QD, ORAL, 250 MG, QD, ORAL, 225 MG, UNK, ORAL
     Route: 048
     Dates: start: 20091201
  5. NEULASTA [Suspect]
     Indication: REFRACTORY ANAEMIA WITH AN EXCESS OF BLASTS

REACTIONS (6)
  - URTICARIA [None]
  - DRUG HYPERSENSITIVITY [None]
  - RASH [None]
  - BLOOD PRESSURE INCREASED [None]
  - SWELLING FACE [None]
  - RASH PRURITIC [None]
